FAERS Safety Report 4855026-0 (Version None)
Quarter: 2005Q4

REPORT INFORMATION
  Report Type: 
  Country: None (occurrence: None)
  Receive Date: 20051214
  Receipt Date: 20051201
  Transmission Date: 20060501
  Serious: Yes (Disabling)
  Sender: FDA-Public Use
  Company Number: 2005163902

PATIENT
  Age: 41 Year
  Sex: Female
  Weight: 77 kg

DRUGS (1)
  1. EPIRUBICIN [Suspect]
     Indication: BREAST CANCER
     Dosage: (100 MG), INTRAVENOUS
     Route: 042
     Dates: start: 20050620, end: 20050830

REACTIONS (3)
  - DISCOMFORT [None]
  - PERIPHERAL VASCULAR DISORDER [None]
  - VEIN DISORDER [None]
